FAERS Safety Report 13452955 (Version 1)
Quarter: 2017Q2

REPORT INFORMATION
  Report Type: Report from Study
  Country: None (occurrence: GB)
  Receive Date: 20170418
  Receipt Date: 20170418
  Transmission Date: 20170830
  Serious: Yes (Other)
  Sender: FDA-Public Use
  Company Number: GB-ABBVIE-17K-167-1945072-00

PATIENT
  Age: 58 Year
  Sex: Male

DRUGS (1)
  1. HUMIRA [Suspect]
     Active Substance: ADALIMUMAB
     Indication: CROHN^S DISEASE
     Route: 058
     Dates: end: 201608

REACTIONS (3)
  - Leukaemia [Unknown]
  - Platelet count decreased [Unknown]
  - Contusion [Unknown]

NARRATIVE: CASE EVENT DATE: 201612
